FAERS Safety Report 4429290-6 (Version None)
Quarter: 2004Q3

REPORT INFORMATION
  Report Type: 
  Country: None (occurrence: None)
  Receive Date: 20040818
  Receipt Date: 20040818
  Transmission Date: 20050211
  Serious: No
  Sender: FDA-Public Use
  Company Number: None

PATIENT
  Sex: Female
  Weight: 74.3899 kg

DRUGS (3)
  1. REMICADE [Suspect]
     Indication: JUVENILE ARTHRITIS
     Dosage: 400MG  Q8WK  INTRAVENOUS
     Route: 042
     Dates: start: 20030625, end: 20040322
  2. PREDNISONE [Concomitant]
  3. CALCIUM [Concomitant]

REACTIONS (3)
  - BLISTER [None]
  - PREGNANCY [None]
  - PSORIASIS [None]
